FAERS Safety Report 4947179-0 (Version None)
Quarter: 2006Q1

REPORT INFORMATION
  Report Type: 
  Country: None (occurrence: None)
  Receive Date: 20060317
  Receipt Date: 20060308
  Transmission Date: 20060701
  Serious: Yes (Hospitalization)
  Sender: FDA-Public Use
  Company Number: CN-ABBOTT-06P-035-0327412-00

PATIENT
  Age: 45 Year
  Sex: Female

DRUGS (6)
  1. DEPAKENE [Suspect]
     Indication: CONVULSION PROPHYLAXIS
     Route: 042
     Dates: start: 20040916, end: 20040920
  2. PHENOBARBITAL TAB [Suspect]
     Indication: CONVULSION PROPHYLAXIS
     Route: 030
     Dates: start: 20040916, end: 20040919
  3. DIAZEPAM [Suspect]
     Indication: EPILEPSY
     Route: 042
     Dates: start: 20040919, end: 20040919
  4. CARBAMAZEPINE [Concomitant]
     Indication: EPILEPSY
     Route: 050
     Dates: start: 20040920
  5. VANCOMYCIN HYDROCHLORIDE [Concomitant]
     Indication: DRUG USE FOR UNKNOWN INDICATION
     Dates: start: 20040916
  6. OXYGEN [Concomitant]
     Indication: DRUG USE FOR UNKNOWN INDICATION
     Dates: start: 20040901

REACTIONS (3)
  - COMA [None]
  - ENCEPHALOPATHY [None]
  - EPILEPSY [None]
